FAERS Safety Report 5353816-1 (Version None)
Quarter: 2007Q2

REPORT INFORMATION
  Report Type: 
  Country: None (occurrence: None)
  Receive Date: 20070608
  Receipt Date: 20070608
  Transmission Date: 20071010
  Serious: Yes (Other)
  Sender: FDA-Public Use
  Company Number: None

PATIENT
  Sex: Female

DRUGS (8)
  1. REVLIMID [Suspect]
     Indication: AMYLOIDOSIS
     Dosage: 15 MG 21D/28D PO
     Route: 048
     Dates: start: 20070309, end: 20070604
  2. LEVOTHROID [Concomitant]
  3. ZETIA [Concomitant]
  4. FUROSEMIDE [Concomitant]
  5. MIDODRINE [Concomitant]
  6. LIPITOR [Concomitant]
  7. PROTONIX [Concomitant]
  8. LYRICA [Concomitant]

REACTIONS (1)
  - WHITE BLOOD CELL COUNT DECREASED [None]
